FAERS Safety Report 4541899-8 (Version None)
Quarter: 2004Q4

REPORT INFORMATION
  Report Type: 
  Country: None (occurrence: None)
  Receive Date: 20041227
  Receipt Date: 20041220
  Transmission Date: 20050328
  Serious: Yes (Hospitalization)
  Sender: FDA-Public Use
  Company Number: 2004CG02553

PATIENT
  Age: 42 Year
  Sex: Female

DRUGS (7)
  1. NEXIUM [Suspect]
     Dates: start: 20041002, end: 20041122
  2. CYMEVAN [Suspect]
     Dates: start: 20041002, end: 20041119
  3. CORTANCYL [Concomitant]
  4. PROGRAF [Concomitant]
  5. TARDYFERON [Concomitant]
  6. SPECIAFOLDINE [Concomitant]
  7. CORTICOSTEROIDS [Concomitant]

REACTIONS (4)
  - AGRANULOCYTOSIS [None]
  - LEUKOPENIA [None]
  - NEUTROPENIA [None]
  - TRANSPLANT REJECTION [None]
